FAERS Safety Report 21336709 (Version 1)
Quarter: 2022Q3

REPORT INFORMATION
  Report Type: Spontaneous
  Country: FR (occurrence: FR)
  Receive Date: 20220915
  Receipt Date: 20220915
  Transmission Date: 20221026
  Serious: Yes (Hospitalization)
  Sender: FDA-Public Use
  Company Number: FR-ROCHE-3167584

PATIENT
  Age: 33 Year
  Sex: Male

DRUGS (6)
  1. PREGABALIN [Suspect]
     Active Substance: PREGABALIN
  2. CANNABIS SATIVA SUBSP. INDICA TOP [Suspect]
     Active Substance: CANNABIS SATIVA SUBSP. INDICA TOP
  3. CLONAZEPAM [Suspect]
     Active Substance: CLONAZEPAM
  4. OXAZEPAM [Suspect]
     Active Substance: OXAZEPAM
  5. MIDOMAFETAMINE [Suspect]
     Active Substance: MIDOMAFETAMINE
     Dosage: DAILY ECSTASY USE
  6. DIAZEPAM [Suspect]
     Active Substance: DIAZEPAM

REACTIONS (5)
  - Drug abuse [Unknown]
  - Altered state of consciousness [Recovered/Resolved]
  - Visual impairment [Unknown]
  - Headache [Unknown]
  - Miosis [Unknown]

NARRATIVE: CASE EVENT DATE: 20220630
